FAERS Safety Report 6998486-1 (Version None)
Quarter: 2010Q3

REPORT INFORMATION
  Report Type: 
  Country: None (occurrence: None)
  Receive Date: 20100920
  Receipt Date: 20090721
  Transmission Date: 20110219
  Serious: Yes (Other)
  Sender: FDA-Public Use
  Company Number: US-ASTRAZENECA-2007UW05170

PATIENT
  Age: 593 Month
  Sex: Female
  Weight: 103 kg

DRUGS (15)
  1. SEROQUEL [Suspect]
     Dosage: 100 TO 300 MG
     Route: 048
     Dates: start: 20060105
  2. ASPIRIN [Concomitant]
     Indication: TRANSIENT ISCHAEMIC ATTACK
     Dates: start: 20060201
  3. PLAVIX [Concomitant]
     Indication: TRANSIENT ISCHAEMIC ATTACK
     Dates: start: 20060201
  4. DILTIA XT [Concomitant]
     Indication: HYPERTENSION
     Route: 048
     Dates: start: 20060302
  5. ATENOLOL [Concomitant]
     Indication: HYPERTENSION
     Route: 048
     Dates: start: 20060302
  6. CLONIDINE [Concomitant]
     Indication: HYPERTENSION
     Route: 048
     Dates: start: 20060302
  7. HYZAAR [Concomitant]
     Indication: HYPERTENSION
     Dosage: 100/25 MG ONCE A DAY
     Route: 048
     Dates: start: 20060302
  8. PROTONIX [Concomitant]
     Indication: GASTROOESOPHAGEAL REFLUX DISEASE
     Route: 048
     Dates: start: 20060302
  9. NAPROXEN [Concomitant]
     Indication: OSTEOARTHRITIS
     Dates: start: 20060302
  10. FLEXERIL [Concomitant]
     Indication: OSTEOARTHRITIS
     Dates: start: 20060302
  11. NORTRIPTYLINE HCL [Concomitant]
     Dates: start: 20041220
  12. CITALOPRAM HYDROBROMIDE [Concomitant]
     Dates: start: 20050110
  13. HYDROXYZINE PAM [Concomitant]
     Dates: start: 20050320
  14. CLONAZEPAM [Concomitant]
     Dates: start: 20050805
  15. CYMBALTA [Concomitant]
     Dates: start: 20060105

REACTIONS (3)
  - DIABETES MELLITUS [None]
  - KETOACIDOSIS [None]
  - PANCREATITIS [None]
